FAERS Safety Report 26153209 (Version 1)
Quarter: 2025Q4

REPORT INFORMATION
  Report Type: Spontaneous
  Country: US (occurrence: US)
  Receive Date: 20251214
  Receipt Date: 20251214
  Transmission Date: 20260117
  Serious: No
  Sender: Atnahs Healthcare
  Company Number: US-ATNAHS-ATNAHS20250604143

PATIENT

DRUGS (2)
  1. VALIUM [Suspect]
     Active Substance: DIAZEPAM
     Indication: Schizoaffective disorder
     Dosage: USED FOR 4 YEARS
  2. TEMAZEPAM [Suspect]
     Active Substance: TEMAZEPAM
     Indication: Schizoaffective disorder
     Dosage: USED FOR 4 YEARS

REACTIONS (1)
  - Off label use [Unknown]
